FAERS Safety Report 9797025 (Version 16)
Quarter: 2014Q3

REPORT INFORMATION
  Report Type: Report from Study
  Country: CA (occurrence: CA)
  Receive Date: 20140105
  Receipt Date: 20140805
  Transmission Date: 20150326
  Serious: Yes (Other)
  Sender: FDA-Public Use
  Company Number: CA-ROCHE-1268380

PATIENT
  Age: 55 Year
  Sex: Female

DRUGS (12)
  1. VITAMIN B2 [Concomitant]
     Active Substance: RIBOFLAVIN
  2. VITAMIN B1 [Concomitant]
     Active Substance: THIAMINE HYDROCHLORIDE
  3. LORAZEPAM. [Concomitant]
     Active Substance: LORAZEPAM
  4. AMITRIPTYLINE [Concomitant]
     Active Substance: AMITRIPTYLINE
  5. ACTEMRA [Suspect]
     Active Substance: TOCILIZUMAB
     Indication: RHEUMATOID ARTHRITIS
     Route: 042
     Dates: start: 20130827, end: 20140530
  6. ENBREL [Concomitant]
     Active Substance: ETANERCEPT
     Dosage: LAST DOSE11/JUL/2013  WAS INSTRUCTED 1 WEEK WASHOUT FROM LAST DOSE TAKEN
     Route: 065
  7. RITUXAN [Suspect]
     Active Substance: RITUXIMAB
     Indication: RHEUMATOID ARTHRITIS
     Route: 042
     Dates: start: 20140711
  8. VITAMIN C [Concomitant]
     Active Substance: ASCORBIC ACID
  9. VITAMIN B3 [Concomitant]
     Active Substance: NIACIN
  10. CELEXA [Concomitant]
     Active Substance: CITALOPRAM HYDROBROMIDE
     Route: 065
     Dates: end: 201401
  11. LOSEC [Concomitant]
     Active Substance: OMEPRAZOLE
  12. METHYLPREDNISOLONE [Concomitant]
     Active Substance: METHYLPREDNISOLONE
     Route: 042
     Dates: start: 20140711

REACTIONS (22)
  - Pylorospasm [Not Recovered/Not Resolved]
  - Anxiety [Not Recovered/Not Resolved]
  - Lipase increased [Unknown]
  - Drug effect decreased [Unknown]
  - Depression [Not Recovered/Not Resolved]
  - Dizziness [Recovered/Resolved]
  - Ulcer [Not Recovered/Not Resolved]
  - Irritability [Recovering/Resolving]
  - Mood altered [Recovering/Resolving]
  - Eye inflammation [Not Recovered/Not Resolved]
  - Cholelithiasis [Not Recovered/Not Resolved]
  - Headache [Recovered/Resolved]
  - White blood cell count increased [Unknown]
  - Fatigue [Unknown]
  - Musculoskeletal stiffness [Unknown]
  - Throat irritation [Recovering/Resolving]
  - Feeling abnormal [Not Recovered/Not Resolved]
  - Rheumatoid arthritis [Unknown]
  - Feeling cold [Recovering/Resolving]
  - Pain [Unknown]
  - Pancreatic disorder [Not Recovered/Not Resolved]
  - Fatigue [Recovered/Resolved]

NARRATIVE: CASE EVENT DATE: 20130827
